FAERS Safety Report 18740657 (Version 1)
Quarter: 2021Q1

REPORT INFORMATION
  Report Type: Spontaneous
  Country: US (occurrence: US)
  Receive Date: 20210114
  Receipt Date: 20210114
  Transmission Date: 20210419
  Serious: Yes (Hospitalization)
  Sender: FDA-Public Use
  Company Number: US-MYLANLABS-2021M1001705

PATIENT
  Age: 70 Year
  Sex: Female

DRUGS (2)
  1. THIAMINE. [Concomitant]
     Active Substance: THIAMINE
     Indication: SEPTIC SHOCK
     Dosage: 200 MILLIGRAM, BID
     Route: 042
  2. ASCORBIC ACID. [Suspect]
     Active Substance: ASCORBIC ACID
     Indication: SEPTIC SHOCK
     Dosage: 1.5 GRAM, Q6H, DAILY DOSE: 6G
     Route: 042

REACTIONS (3)
  - Renal tubular injury [Recovering/Resolving]
  - Acute kidney injury [Recovering/Resolving]
  - Crystal nephropathy [Recovering/Resolving]
